FAERS Safety Report 4529705-9 (Version None)
Quarter: 2004Q4

REPORT INFORMATION
  Report Type: 
  Country: None (occurrence: None)
  Receive Date: 20041214
  Receipt Date: 20041201
  Transmission Date: 20050328
  Serious: Yes (Other)
  Sender: FDA-Public Use
  Company Number: 2004-05100

PATIENT
  Age: 70 Year
  Sex: Female
  Weight: 80.7 kg

DRUGS (7)
  1. PREDNISONE [Suspect]
     Indication: RHEUMATOID ARTHRITIS
     Dosage: 10 MG:TIDX4D, BIDX4D, THEN DAILY, ORAL
     Route: 048
     Dates: start: 20041101
  2. PREVACID [Concomitant]
  3. PLAVIX [Concomitant]
  4. LOVASTATIN [Concomitant]
  5. COUMADIN [Concomitant]
  6. DIAZIDE (GLICLAZIDE) [Concomitant]
  7. ASPIRIN [Concomitant]

REACTIONS (6)
  - CEREBROVASCULAR ACCIDENT [None]
  - DRUG INEFFECTIVE [None]
  - ERYTHEMA [None]
  - GENERALISED OEDEMA [None]
  - HYPOAESTHESIA [None]
  - INTERVERTEBRAL DISC PROTRUSION [None]
